FAERS Safety Report 12157604 (Version 1)
Quarter: 2016Q1

REPORT INFORMATION
  Report Type: Spontaneous
  Country: US (occurrence: None)
  Receive Date: 20160307
  Receipt Date: 20160307
  Transmission Date: 20160526
  Serious: Yes (Life-Threatening)
  Sender: FDA-Public Use
  Company Number: None

PATIENT
  Age: 59 Year
  Sex: Male
  Weight: 77.11 kg

DRUGS (8)
  1. CARBAMAZAPINE 200 MG TORRENT/CVS [Suspect]
     Active Substance: CARBAMAZEPINE
     Indication: BIPOLAR DISORDER
     Dosage: 3 PILLS
     Route: 048
     Dates: start: 20160222, end: 20160305
  2. HYDROCHLOROTHIAZIDE. [Concomitant]
     Active Substance: HYDROCHLOROTHIAZIDE
  3. LISINOPRIL. [Concomitant]
     Active Substance: LISINOPRIL
  4. CARBAMAZAPINE 200 MG TORRENT/CVS [Suspect]
     Active Substance: CARBAMAZEPINE
     Indication: AFFECTIVE DISORDER
     Dosage: 3 PILLS
     Route: 048
     Dates: start: 20160222, end: 20160305
  5. PERPHENAZINE. [Concomitant]
     Active Substance: PERPHENAZINE
  6. PRAVASTATIN SODIUM. [Concomitant]
     Active Substance: PRAVASTATIN SODIUM
  7. PRAVASTATIN [Concomitant]
     Active Substance: PRAVASTATIN\PRAVASTATIN SODIUM
  8. ASPIRIN. [Concomitant]
     Active Substance: ASPIRIN

REACTIONS (4)
  - Dizziness [None]
  - Product quality issue [None]
  - Vision blurred [None]
  - Impaired driving ability [None]

NARRATIVE: CASE EVENT DATE: 20160305
